FAERS Safety Report 4752378-7 (Version None)
Quarter: 2005Q3

REPORT INFORMATION
  Report Type: 
  Country: None (occurrence: None)
  Receive Date: 20050823
  Receipt Date: 20050808
  Transmission Date: 20060218
  Serious: Yes (Death)
  Sender: FDA-Public Use
  Company Number: EWC050745158

PATIENT
  Age: 40 Year
  Sex: Male
  Weight: 70 kg

DRUGS (15)
  1. XIGRIS [Suspect]
     Indication: SEPSIS
     Dosage: 24 UG/96 HOUR
     Dates: start: 20050714, end: 20050718
  2. ARTESUNATE [Concomitant]
  3. MEROPENEM [Concomitant]
  4. VANCOMYCIN [Concomitant]
  5. LASIX (FUROEMIDE) [Concomitant]
  6. NORADRENALINE [Concomitant]
  7. DOBUTAMINE HCL [Concomitant]
  8. PANTOCID [Concomitant]
  9. FENTANYL [Concomitant]
  10. MIDAZOLAM HCL [Concomitant]
  11. PROPOFOL [Concomitant]
  12. CHLOROQUINE PHOSPHATE [Concomitant]
  13. HUMAN ACTRAPID (INSULIN HUMAN) [Concomitant]
  14. HYDROCORTISONE SODIUM SUCCINATE [Concomitant]
  15. PAVULON [Concomitant]

REACTIONS (7)
  - ACTIVATED PARTIAL THROMBOPLASTIN TIME PROLONGED [None]
  - BRAIN OEDEMA [None]
  - HAEMORRHAGE INTRACRANIAL [None]
  - MULTI-ORGAN FAILURE [None]
  - MYDRIASIS [None]
  - PLATELET COUNT DECREASED [None]
  - PUPIL FIXED [None]
